FAERS Safety Report 4855067-3 (Version None)
Quarter: 2005Q4

REPORT INFORMATION
  Report Type: 
  Country: None (occurrence: None)
  Receive Date: 20051214
  Receipt Date: 20051205
  Transmission Date: 20060501
  Serious: Yes (Other)
  Sender: FDA-Public Use
  Company Number: 2005165119

PATIENT
  Age: 28 Year
  Sex: Female

DRUGS (3)
  1. GEODON [Suspect]
     Indication: MANIA
  2. ALL OTHERS THERAPEUTIC PRODUCTS (ALL OTHER THERAPEUTIC PRODUCTS) [Suspect]
     Indication: ILL-DEFINED DISORDER
  3. ALL OTHERS THERAPEUTIC PRODUCTS (ALL OTHER THERAPEUTIC PRODUCTS) [Suspect]
     Indication: ILL-DEFINED DISORDER

REACTIONS (4)
  - EATING DISORDER [None]
  - LONG QT SYNDROME [None]
  - NONSPECIFIC REACTION [None]
  - VENTRICULAR FIBRILLATION [None]
